FAERS Safety Report 13095091 (Version 1)
Quarter: 2017Q1

REPORT INFORMATION
  Report Type: Other
  Country: ES (occurrence: ES)
  Receive Date: 20170107
  Receipt Date: 20170107
  Transmission Date: 20170428
  Serious: Yes (Hospitalization)
  Sender: FDA-Public Use
  Company Number: ES-GRANULES INDIA LIMITED-1061685

PATIENT
  Age: 36 Year
  Sex: Female

DRUGS (4)
  1. IBUPROFEN. [Suspect]
     Active Substance: IBUPROFEN
     Indication: PRODUCT USED FOR UNKNOWN INDICATION
     Dates: start: 20090421
  2. AMOXICILLIN. [Concomitant]
     Active Substance: AMOXICILLIN
     Route: 048
     Dates: start: 200904
  3. IBUPROFEN. [Suspect]
     Active Substance: IBUPROFEN
     Indication: EAR PAIN
     Dates: start: 20090421
  4. IBUPROFEN. [Suspect]
     Active Substance: IBUPROFEN
     Indication: MYALGIA
     Dates: start: 20090421

REACTIONS (2)
  - Meningoencephalitis viral [Unknown]
  - Meningitis aseptic [None]
